FAERS Safety Report 10044409 (Version 1)
Quarter: 2014Q1

REPORT INFORMATION
  Report Type: Spontaneous
  Country: US (occurrence: None)
  Receive Date: 20140306
  Receipt Date: 20140306
  Transmission Date: 20141002
  Serious: Yes (Hospitalization, Other)
  Sender: FDA-Public Use
  Company Number: 163-21880-13070304

PATIENT
  Age: 52 Year
  Sex: Male

DRUGS (7)
  1. REVLIMID [Suspect]
     Indication: PLASMA CELL MYELOMA
     Dosage: 25MG, 21 IN 21D, PO
     Route: 048
     Dates: start: 20120918
  2. ASA (ACETYLSALICYLIC ACID) [Concomitant]
  3. MS CONTIN (MORPHINE SULFATE) [Concomitant]
  4. ACYCLOVIR (ACICLOVIR) [Concomitant]
  5. PAMIDRONATE (PAMIDRONATE DISODIUM) [Concomitant]
  6. OXYCODONE (OXYCODONE) [Concomitant]
  7. HYDROCORTISONE (HYDROCORTISONE) (CREAM) [Concomitant]

REACTIONS (2)
  - Cholecystitis [None]
  - Rash [None]
